FAERS Safety Report 18406240 (Version 1)
Quarter: 2020Q4

REPORT INFORMATION
  Report Type: Spontaneous
  Country: US (occurrence: US)
  Receive Date: 20201020
  Receipt Date: 20201020
  Transmission Date: 20210114
  Serious: Yes (Other)
  Sender: FDA-Public Use
  Company Number: US-RISING PHARMACEUTICALS, INC.-2020RIS00407

PATIENT
  Sex: Female
  Weight: 68.03 kg

DRUGS (8)
  1. FUROSEMIDE. [Concomitant]
     Active Substance: FUROSEMIDE
  2. ATENOLOL. [Suspect]
     Active Substance: ATENOLOL
     Indication: ATRIAL FIBRILLATION
     Dosage: 25 MG, 1X/DAY
     Route: 048
     Dates: start: 2000
  3. ATENOLOL. [Suspect]
     Active Substance: ATENOLOL
     Dosage: 25 MG, 1X/DAY
     Route: 048
     Dates: start: 2019, end: 20200202
  4. WARFARIN [Concomitant]
     Active Substance: WARFARIN
  5. METOLAZONE. [Concomitant]
     Active Substance: METOLAZONE
     Dosage: UNK, AS NEEDED
  6. UNSPECIFIED MINERALS [Concomitant]
  7. TIROSINT-SOL [Concomitant]
     Active Substance: LEVOTHYROXINE SODIUM
  8. UNSPECIFIED VITAMINS [Concomitant]
     Active Substance: VITAMINS

REACTIONS (4)
  - Drug ineffective [Recovered/Resolved]
  - Vomiting [Recovered/Resolved]
  - Macular degeneration [Not Recovered/Not Resolved]
  - Dizziness [Not Recovered/Not Resolved]

NARRATIVE: CASE EVENT DATE: 2015
